FAERS Safety Report 9748486 (Version 1)
Quarter: 2013Q4

REPORT INFORMATION
  Report Type: Spontaneous
  Country: US (occurrence: US)
  Receive Date: 20131212
  Receipt Date: 20131212
  Transmission Date: 20140711
  Serious: Yes (Hospitalization)
  Sender: FDA-Public Use
  Company Number: US-JNJFOC-20131202755

PATIENT
  Sex: Female
  Weight: 56.7 kg

DRUGS (2)
  1. REMICADE [Suspect]
     Indication: CROHN^S DISEASE
     Dosage: 3 VIALS
     Route: 042
  2. PERCOCET [Concomitant]
     Indication: PAIN
     Route: 048
     Dates: start: 1998

REACTIONS (1)
  - Intestinal perforation [Unknown]
